FAERS Safety Report 12266563 (Version 1)
Quarter: 2016Q2

REPORT INFORMATION
  Report Type: Report from Study
  Country: CN (occurrence: CN)
  Receive Date: 20160414
  Receipt Date: 20160414
  Transmission Date: 20160815
  Serious: Yes (Hospitalization)
  Sender: FDA-Public Use
  Company Number: CN-ASTRAZENECA-2016SE38248

PATIENT
  Age: 19 Year
  Sex: Male

DRUGS (2)
  1. OMEPRAZOLE MAGNESIUM. [Suspect]
     Active Substance: OMEPRAZOLE MAGNESIUM
     Indication: GASTRITIS EROSIVE
     Dosage: SUZHOU SINOCHEM PHARMACEUTICAL INDUSTRY CO., LTD (20 MG, DAILY)
     Route: 048
     Dates: start: 201212, end: 201308
  2. OMEPRAZOLE MAGNESIUM. [Suspect]
     Active Substance: OMEPRAZOLE MAGNESIUM
     Indication: GASTRITIS EROSIVE
     Route: 048
     Dates: start: 201308

REACTIONS (2)
  - Small intestine polyp [Recovered/Resolved]
  - Gastric polyps [Recovered/Resolved]

NARRATIVE: CASE EVENT DATE: 20131203
